FAERS Safety Report 5123810-4 (Version None)
Quarter: 2006Q3

REPORT INFORMATION
  Report Type: 
  Country: None (occurrence: None)
  Receive Date: 20060811
  Receipt Date: 20060601
  Transmission Date: 20061208
  Serious: No
  Sender: FDA-Public Use
  Company Number: 200615146US

PATIENT
  Sex: Female

DRUGS (10)
  1. APIDRA [Suspect]
     Indication: DIABETES MELLITUS NON-INSULIN-DEPENDENT
     Dosage: 7 U BID
     Dates: start: 20060401
  2. OPTICLIK [Suspect]
     Indication: DIABETES MELLITUS NON-INSULIN-DEPENDENT
     Dates: start: 20060401
  3. AMARYL [Concomitant]
  4. METFORMIN HYDROCHLORIDE [Concomitant]
  5. NEXIUM [Concomitant]
  6. TOPIRAMATE [Concomitant]
  7. LIPITOR [Concomitant]
  8. . [Concomitant]
  9. ESTROGENS CONJUGATED (PREMARIN) [Concomitant]
  10. PROZAC [Concomitant]

REACTIONS (1)
  - RASH PRURITIC [None]
